FAERS Safety Report 14004775 (Version 1)
Quarter: 2017Q3

REPORT INFORMATION
  Report Type: Spontaneous
  Country: US (occurrence: US)
  Receive Date: 20170922
  Receipt Date: 20170922
  Transmission Date: 20171128
  Serious: No
  Sender: FDA-Public Use
  Company Number: US-PFIZER INC-2017407817

PATIENT
  Sex: Female

DRUGS (3)
  1. DEXTRAN [Suspect]
     Active Substance: DEXTRAN
     Dosage: UNK
  2. IRON [Suspect]
     Active Substance: IRON
     Dosage: UNK
  3. HUMIRA [Suspect]
     Active Substance: ADALIMUMAB
     Dosage: UNK

REACTIONS (1)
  - Drug hypersensitivity [Unknown]
